FAERS Safety Report 24787755 (Version 7)
Quarter: 2025Q1

REPORT INFORMATION
  Report Type: Report from Study
  Country: CA (occurrence: CA)
  Receive Date: 20241230
  Receipt Date: 20250214
  Transmission Date: 20250408
  Serious: Yes (Hospitalization)
  Sender: CSL BEHRING
  Company Number: CA-BEH-2024186445

PATIENT
  Age: 81 Year
  Sex: Female
  Weight: 68 kg

DRUGS (11)
  1. HIZENTRA [Suspect]
     Active Substance: HUMAN IMMUNOGLOBULIN G
     Indication: Secondary immunodeficiency
     Dosage: 8 G, QW
     Route: 065
     Dates: start: 20241114
  2. HIZENTRA [Suspect]
     Active Substance: HUMAN IMMUNOGLOBULIN G
     Dosage: 8 G, QW
     Route: 058
     Dates: start: 20241114
  3. HIZENTRA [Suspect]
     Active Substance: HUMAN IMMUNOGLOBULIN G
     Dosage: 8 G, QW
     Route: 065
     Dates: start: 20241114
  4. HIZENTRA [Suspect]
     Active Substance: HUMAN IMMUNOGLOBULIN G
     Dosage: UNK UNK, QW
     Route: 065
     Dates: start: 20241114
  5. HIZENTRA [Suspect]
     Active Substance: HUMAN IMMUNOGLOBULIN G
     Route: 065
     Dates: start: 20241221
  6. HIZENTRA [Suspect]
     Active Substance: HUMAN IMMUNOGLOBULIN G
     Dosage: 8 G, QW
     Route: 065
     Dates: start: 20250113
  7. HIZENTRA [Suspect]
     Active Substance: HUMAN IMMUNOGLOBULIN G
     Dosage: 8 G, QW
     Route: 065
  8. HIZENTRA [Suspect]
     Active Substance: HUMAN IMMUNOGLOBULIN G
     Dosage: QW(STRENGTH: 8 G)
     Route: 065
     Dates: start: 20241114
  9. HIZENTRA [Suspect]
     Active Substance: HUMAN IMMUNOGLOBULIN G
     Route: 065
     Dates: start: 20250120
  10. HIZENTRA [Suspect]
     Active Substance: HUMAN IMMUNOGLOBULIN G
     Dosage: QW(STRENGTH: 8 G)
     Route: 065
  11. HIZENTRA [Suspect]
     Active Substance: HUMAN IMMUNOGLOBULIN G
     Dosage: QW(STRENGTH: 8 G)
     Route: 065

REACTIONS (19)
  - Hospitalisation [Unknown]
  - Otolithiasis [Unknown]
  - Magnesium deficiency [Unknown]
  - Product dose omission issue [Unknown]
  - Dizziness [Unknown]
  - Confusional state [Unknown]
  - Injection site swelling [Unknown]
  - Injection site mass [Unknown]
  - Headache [Unknown]
  - Memory impairment [Unknown]
  - Memory impairment [Unknown]
  - Infusion site oedema [Unknown]
  - Infusion site oedema [Unknown]
  - Memory impairment [Unknown]
  - Infusion site erythema [Unknown]
  - Diarrhoea [Unknown]
  - Infusion site oedema [Unknown]
  - Infusion site erythema [Unknown]
  - Memory impairment [Unknown]

NARRATIVE: CASE EVENT DATE: 20241121
